FAERS Safety Report 21029954 (Version 1)
Quarter: 2022Q3

REPORT INFORMATION
  Report Type: Spontaneous
  Country: US (occurrence: None)
  Receive Date: 20220701
  Receipt Date: 20220701
  Transmission Date: 20221027
  Serious: No
  Sender: FDA-Public Use
  Company Number: US-ROCHE-2948351

PATIENT
  Age: 66 Year
  Sex: Female
  Weight: 59.020 kg

DRUGS (8)
  1. ACTEMRA [Suspect]
     Active Substance: TOCILIZUMAB
     Indication: Giant cell arteritis
     Dosage: STRENGTH: 162MG/0.9ML
     Route: 058
     Dates: start: 202106
  2. ACTEMRA [Suspect]
     Active Substance: TOCILIZUMAB
  3. ACTEMRA [Suspect]
     Active Substance: TOCILIZUMAB
     Route: 058
     Dates: start: 202105
  4. ACTEMRA [Suspect]
     Active Substance: TOCILIZUMAB
  5. PREDNISONE [Concomitant]
     Active Substance: PREDNISONE
     Indication: Giant cell arteritis
  6. PREDNISONE [Concomitant]
     Active Substance: PREDNISONE
     Dates: end: 202110
  7. PREDNISONE [Concomitant]
     Active Substance: PREDNISONE
     Dosage: EVERY OTHER DAY FOR ONE WEEK
     Dates: start: 202110, end: 202110
  8. THYROID [Concomitant]
     Active Substance: LEVOTHYROXINE\LIOTHYRONINE
     Route: 048

REACTIONS (8)
  - Nasopharyngitis [Not Recovered/Not Resolved]
  - Nasal congestion [Not Recovered/Not Resolved]
  - Dyspnoea [Unknown]
  - Nasal disorder [Unknown]
  - Diarrhoea [Unknown]
  - Headache [Unknown]
  - Sinusitis [Not Recovered/Not Resolved]
  - Peripheral swelling [Unknown]

NARRATIVE: CASE EVENT DATE: 20211001
